FAERS Safety Report 5616342-8 (Version None)
Quarter: 2008Q1

REPORT INFORMATION
  Report Type: 
  Country: None (occurrence: None)
  Receive Date: 20080206
  Receipt Date: 20080206
  Transmission Date: 20080703
  Serious: Yes (Hospitalization)
  Sender: FDA-Public Use
  Company Number: None

PATIENT
  Sex: Male
  Weight: 68.9 kg

DRUGS (4)
  1. FLUOROURACIL [Suspect]
     Dosage: 5240 MG
  2. ERBITUX [Suspect]
     Dosage: 938 MG
  3. LEUCOVORIN CALCIUM [Suspect]
     Dosage: 750 MG
  4. ELOXATIN [Suspect]
     Dosage: 159 MG

REACTIONS (9)
  - BACTERIAL SEPSIS [None]
  - DIARRHOEA [None]
  - GASTROINTESTINAL HAEMORRHAGE [None]
  - HAEMOGLOBIN DECREASED [None]
  - LOSS OF CONSCIOUSNESS [None]
  - OESOPHAGEAL MASS [None]
  - OESOPHAGEAL ULCER [None]
  - OPEN WOUND [None]
  - SEPTIC SHOCK [None]
